FAERS Safety Report 20790403 (Version 3)
Quarter: 2022Q2

REPORT INFORMATION
  Report Type: Spontaneous
  Country: NL (occurrence: NL)
  Receive Date: 20220505
  Receipt Date: 20220531
  Transmission Date: 20220721
  Serious: No
  Sender: FDA-Public Use
  Company Number: NL-002147023-NVSC2022NL096699

PATIENT
  Sex: Male

DRUGS (1)
  1. AIMOVIG [Suspect]
     Active Substance: ERENUMAB-AOOE
     Indication: Product used for unknown indication
     Dosage: 140 MILLIGRAM, Q4WK  7-8 MONTHS
     Route: 065

REACTIONS (5)
  - Migraine [Unknown]
  - Head discomfort [Unknown]
  - Injection site haemorrhage [Unknown]
  - Injection site pain [Unknown]
  - Therapeutic product effect incomplete [Unknown]
